FAERS Safety Report 24842273 (Version 1)
Quarter: 2025Q1

REPORT INFORMATION
  Report Type: Spontaneous
  Country: US (occurrence: US)
  Receive Date: 20250115
  Receipt Date: 20250115
  Transmission Date: 20250408
  Serious: No
  Sender: SANOFI AVENTIS
  Company Number: US-SA-2025SA010915

PATIENT
  Sex: Female

DRUGS (12)
  1. DUPIXENT [Suspect]
     Active Substance: DUPILUMAB
     Indication: Asthma
     Route: 058
  2. ALBUTEROL [Concomitant]
     Active Substance: ALBUTEROL
  3. BENZTROPINE [Concomitant]
     Active Substance: BENZTROPINE
  4. CLINDAMYCIN [Concomitant]
     Active Substance: CLINDAMYCIN
  5. CLONAZEPAM [Concomitant]
     Active Substance: CLONAZEPAM
  6. METFORMIN [Concomitant]
     Active Substance: METFORMIN HYDROCHLORIDE
  7. MIRTAZAPINE [Concomitant]
     Active Substance: MIRTAZAPINE
  8. MOMETASONE [Concomitant]
     Active Substance: MOMETASONE
  9. QUETIAPINE [Concomitant]
     Active Substance: QUETIAPINE
  10. ROSUVASTATIN [Concomitant]
     Active Substance: ROSUVASTATIN
  11. TRELEGY ELLIPTA [Concomitant]
     Active Substance: FLUTICASONE FUROATE\UMECLIDINIUM BROMIDE\VILANTEROL TRIFENATATE
  12. VALSARTAN [Concomitant]
     Active Substance: VALSARTAN

REACTIONS (8)
  - Loss of personal independence in daily activities [Not Recovered/Not Resolved]
  - Dyspnoea [Not Recovered/Not Resolved]
  - Sleep disorder due to a general medical condition [Not Recovered/Not Resolved]
  - Cough [Not Recovered/Not Resolved]
  - Depression [Not Recovered/Not Resolved]
  - Fatigue [Not Recovered/Not Resolved]
  - Asthenia [Not Recovered/Not Resolved]
  - Hyperphagia [Not Recovered/Not Resolved]
